FAERS Safety Report 7953906-0 (Version None)
Quarter: 2011Q4

REPORT INFORMATION
  Report Type: 
  Country: None (occurrence: None)
  Receive Date: 20111129
  Receipt Date: 20111115
  Transmission Date: 20120403
  Serious: Yes (Disabling)
  Sender: FDA-Public Use
  Company Number: 2011P1010642

PATIENT
  Age: 4 Year
  Sex: Female

DRUGS (3)
  1. MOTRIN [Concomitant]
  2. DEXAMETHASONE SODIUM POSPHATE [Suspect]
     Indication: DYSPNOEA
     Dosage: 8 MG; X1; PO
     Route: 048
     Dates: start: 20111109, end: 20111109
  3. ALBUTEROL [Concomitant]

REACTIONS (1)
  - ABASIA [None]
